FAERS Safety Report 14733151 (Version 1)
Quarter: 2018Q2

REPORT INFORMATION
  Report Type: Spontaneous
  Country: US (occurrence: US)
  Receive Date: 20180403
  Receipt Date: 20180403
  Transmission Date: 20180711
  Serious: No
  Sender: FDA-Public Use
  Company Number: None

PATIENT
  Age: 7 Year
  Sex: Male
  Weight: 30.6 kg

DRUGS (1)
  1. AZITHROMYCIN FOR ORAL SUSPENSION, CHERRY FLAVORED [Suspect]
     Active Substance: AZITHROMYCIN ANHYDROUS
     Indication: BRONCHITIS
     Dosage: ?          QUANTITY:1 3.75 ML;?
     Route: 048
     Dates: start: 20180328, end: 20180401

REACTIONS (1)
  - Rash [None]

NARRATIVE: CASE EVENT DATE: 20180330
